FAERS Safety Report 6651326-2 (Version None)
Quarter: 2010Q1

REPORT INFORMATION
  Report Type: 
  Country: None (occurrence: None)
  Receive Date: 20100325
  Receipt Date: 20100317
  Transmission Date: 20100710
  Serious: Yes (Death)
  Sender: FDA-Public Use
  Company Number: IN-BRISTOL-MYERS SQUIBB COMPANY-14912968

PATIENT
  Age: 65 Year
  Sex: Male
  Weight: 79 kg

DRUGS (12)
  1. CISPLATIN [Suspect]
     Indication: NON-SMALL CELL LUNG CANCER
     Route: 042
     Dates: start: 20091216
  2. ALIMTA [Suspect]
     Indication: NON-SMALL CELL LUNG CANCER
     Route: 042
     Dates: start: 20091216
  3. FOLIC ACID [Concomitant]
     Dates: start: 20091210
  4. VITAMIN B-12 [Concomitant]
     Dates: start: 20091215, end: 20091215
  5. DEXAMETHASONE [Concomitant]
     Dates: start: 20091214, end: 20091217
  6. ONDANSETRON [Concomitant]
     Indication: VOMITING
     Dosage: TABLET
     Dates: start: 20091216, end: 20091219
  7. FERROUS SULFATE TAB [Concomitant]
     Indication: PROPHYLAXIS
     Dosage: TABLET
     Dates: start: 20091216
  8. HEXIDIN [Concomitant]
     Indication: INFECTION
     Dates: start: 20091216
  9. APREPITANT [Concomitant]
     Indication: NAUSEA
     Dates: start: 20091216, end: 20091218
  10. APREPITANT [Concomitant]
     Indication: VOMITING
     Dates: start: 20091216, end: 20091218
  11. VITAMIN B COMPLEX TAB [Concomitant]
     Dates: start: 20091216
  12. CLOTRIMAZOLE [Concomitant]
     Dates: start: 20091216

REACTIONS (1)
  - DIARRHOEA [None]
